FAERS Safety Report 4932375-9 (Version None)
Quarter: 2006Q1

REPORT INFORMATION
  Report Type: 
  Country: None (occurrence: None)
  Receive Date: 20060301
  Receipt Date: 20060215
  Transmission Date: 20060701
  Serious: Yes (Hospitalization)
  Sender: FDA-Public Use
  Company Number: SUS1-2005-00847

PATIENT
  Age: 30 Year
  Sex: Male

DRUGS (6)
  1. PENTASA [Suspect]
     Indication: CROHN'S DISEASE
     Dosage: ORAL
     Route: 048
     Dates: end: 20051001
  2. CLONAZEPAM [Concomitant]
  3. SINTROM [Concomitant]
  4. NEURONTIN [Concomitant]
  5. MEDROL [Concomitant]
  6. SYNACTHENE        (TETRACOSACTIDE) [Concomitant]

REACTIONS (4)
  - ANTINEUTROPHIL CYTOPLASMIC ANTIBODY POSITIVE [None]
  - EOSINOPHILIA [None]
  - STRONGYLOIDIASIS [None]
  - TRYPTASE INCREASED [None]
